FAERS Safety Report 4437661-7 (Version None)
Quarter: 2004Q3

REPORT INFORMATION
  Report Type: 
  Country: None (occurrence: None)
  Receive Date: 20040831
  Receipt Date: 20040820
  Transmission Date: 20050211
  Serious: Yes (Other)
  Sender: FDA-Public Use
  Company Number: BR-BRISTOL-MYERS SQUIBB COMPANY-12679593

PATIENT
  Age: 31 Year
  Sex: Male

DRUGS (4)
  1. ATAZANAVIR [Suspect]
     Route: 048
     Dates: start: 20031124
  2. DIDANOSINE EC [Suspect]
     Route: 048
     Dates: start: 20040502
  3. RITONAVIR [Suspect]
     Route: 048
     Dates: start: 20031124
  4. TENOFOVIR [Suspect]
     Route: 048
     Dates: start: 20020723

REACTIONS (1)
  - HYPERTRIGLYCERIDAEMIA [None]
